FAERS Safety Report 5567638-X (Version None)
Quarter: 2007Q4

REPORT INFORMATION
  Report Type: 
  Country: None (occurrence: None)
  Receive Date: 20071214
  Receipt Date: 20071203
  Transmission Date: 20080405
  Serious: Yes (Hospitalization, Disabling)
  Sender: FDA-Public Use
  Company Number: TPA2007A00327

PATIENT
  Age: 69 Year
  Sex: Female
  Weight: 117.9352 kg

DRUGS (7)
  1. ACTOS [Suspect]
     Indication: TYPE 2 DIABETES MELLITUS
     Dosage: 15 MG, 1 IN 1 D, PER ORAL
     Route: 048
     Dates: start: 20050630
  2. ACTOS [Suspect]
     Indication: TYPE 2 DIABETES MELLITUS
     Dosage: 15 MG, 1 IN 1 D, PER ORAL
     Route: 048
     Dates: start: 20060101
  3. METFORMIN (METFORMIN) [Concomitant]
  4. GLYBURIDE [Concomitant]
  5. ADVAIR INHALER (FLUTICASONE PROPIONATE, SALMETEROL XINAFOATE) [Concomitant]
  6. VICODIN [Concomitant]
  7. MULTI-VITAMINS [Concomitant]

REACTIONS (7)
  - ABASIA [None]
  - ARTHRALGIA [None]
  - FALL [None]
  - LOWER LIMB FRACTURE [None]
  - THINKING ABNORMAL [None]
  - UPPER LIMB FRACTURE [None]
  - WHEELCHAIR USER [None]
